FAERS Safety Report 11168405 (Version 1)
Quarter: 2015Q2

REPORT INFORMATION
  Report Type: Spontaneous
  Country: US (occurrence: None)
  Receive Date: 20150604
  Receipt Date: 20150604
  Transmission Date: 20150821
  Serious: Yes (Disabling)
  Sender: FDA-Public Use
  Company Number: None

PATIENT
  Age: 57 Year
  Sex: Female
  Weight: 58.06 kg

DRUGS (1)
  1. LYRICA [Suspect]
     Active Substance: PREGABALIN
     Indication: HIP ARTHROPLASTY
     Dosage: 1 PILLS
     Route: 048
     Dates: start: 20150520, end: 20150529

REACTIONS (7)
  - Depressed mood [None]
  - Crying [None]
  - Autophobia [None]
  - Nasal discomfort [None]
  - Nasal congestion [None]
  - Depression [None]
  - Drug withdrawal syndrome [None]

NARRATIVE: CASE EVENT DATE: 20150529
